FAERS Safety Report 10695677 (Version 1)
Quarter: 2015Q1

REPORT INFORMATION
  Report Type: Spontaneous
  Country: US (occurrence: US)
  Receive Date: 20150107
  Receipt Date: 20150107
  Transmission Date: 20150721
  Serious: Yes (Death)
  Sender: FDA-Public Use
  Company Number: US-PFIZER INC-2015001268

PATIENT
  Age: 41 Year
  Sex: Female

DRUGS (1)
  1. XALKORI [Suspect]
     Active Substance: CRIZOTINIB
     Indication: GASTRIC CANCER
     Dosage: 250 MG, UNK
     Dates: start: 20140823

REACTIONS (3)
  - Disease progression [Fatal]
  - Product use issue [Unknown]
  - Gastric cancer [Fatal]

NARRATIVE: CASE EVENT DATE: 20141215
